FAERS Safety Report 4774375-8 (Version None)
Quarter: 2005Q3

REPORT INFORMATION
  Report Type: 
  Country: None (occurrence: None)
  Receive Date: 20050914
  Receipt Date: 20050404
  Transmission Date: 20060218
  Serious: Yes (Hospitalization)
  Sender: FDA-Public Use
  Company Number: 163-20785-05040058

PATIENT
  Age: 66 Year
  Sex: Female

DRUGS (16)
  1. THALOMID [Suspect]
     Indication: MULTIPLE MYELOMA
     Dosage: 50 MG, DAILY, ORAL; ORAL
     Route: 048
     Dates: start: 20030718
  2. THALOMID [Suspect]
     Indication: MULTIPLE MYELOMA
     Dosage: 50 MG, DAILY, ORAL; ORAL
     Route: 048
     Dates: start: 20050301
  3. DEXAMETHASONE [Suspect]
     Indication: MULTIPLE MYELOMA
     Dosage: 20 MG, DAYS 1-4 Q21DAYS
     Dates: start: 20030718
  4. CISPLATIN [Suspect]
     Indication: MULTIPLE MYELOMA
     Dates: start: 20030718
  5. ADRIAMYCIN (DOXORUBIXIN) [Suspect]
     Indication: MULTIPLE MYELOMA
     Dates: start: 20030718
  6. CYCLOPHOSPHAMIDE [Suspect]
     Indication: MULTIPLE MYELOMA
     Dates: start: 20030718
  7. ETOPOSIDE [Suspect]
     Indication: MULTIPLE MYELOMA
     Dates: start: 20030718
  8. MELPHALAN (MELPHALAN) [Suspect]
     Indication: MULTIPLE MYELOMA
     Dates: start: 20030829
  9. SYNTHROID [Concomitant]
  10. LORAZEPAM [Concomitant]
  11. PERI-COLACE (PERI-COLACE) [Concomitant]
  12. LEVAQUIN [Concomitant]
  13. ZOMETA [Concomitant]
  14. NEURONTIN [Concomitant]
  15. DURAGESIC-100 [Concomitant]
  16. DIFLUCAN [Concomitant]

REACTIONS (1)
  - HYPERCALCAEMIA [None]
